FAERS Safety Report 10200997 (Version 3)
Quarter: 2014Q2

REPORT INFORMATION
  Report Type: Spontaneous
  Country: GB (occurrence: GB)
  Receive Date: 20140528
  Receipt Date: 20140623
  Transmission Date: 20141212
  Serious: Yes (Hospitalization)
  Sender: FDA-Public Use
  Company Number: PHFR2014GB003310

PATIENT
  Age: 29 Year
  Sex: Female

DRUGS (5)
  1. CLOZARIL [Suspect]
     Indication: SCHIZOAFFECTIVE DISORDER
     Dosage: 300 MG (OD)
     Route: 048
     Dates: start: 20050807, end: 20140430
  2. LITHIUM CARBONATE [Concomitant]
     Indication: SCHIZOAFFECTIVE DISORDER
     Dosage: 600 MG (OD)
     Route: 048
  3. LEVOTHYROXINE [Concomitant]
     Dosage: 25 UG (OD)
     Route: 048
  4. CERAZETTE [Concomitant]
     Dosage: 1 DF (OD)
     Route: 048
  5. OLANZAPINE [Concomitant]
     Dosage: 10 MG, UNK
     Route: 048
     Dates: start: 20140506

REACTIONS (2)
  - Blood test abnormal [Recovered/Resolved]
  - Mental impairment [Recovered/Resolved]
